FAERS Safety Report 8463853-6 (Version None)
Quarter: 2012Q2

REPORT INFORMATION
  Report Type: 
  Country: None (occurrence: None)
  Receive Date: 20120625
  Receipt Date: 20120618
  Transmission Date: 20120825
  Serious: Yes (Hospitalization, Other)
  Sender: FDA-Public Use
  Company Number: US-AMGEN-USASP2011027906

PATIENT
  Age: 77 Year
  Sex: Female
  Weight: 71.655 kg

DRUGS (2)
  1. ENBREL [Suspect]
     Indication: RHEUMATOID ARTHRITIS
     Dosage: 50 MG, QWK
     Dates: start: 19981201
  2. ENBREL [Suspect]
     Indication: PSORIASIS

REACTIONS (12)
  - MOBILITY DECREASED [None]
  - IMPAIRED HEALING [None]
  - UPPER LIMB FRACTURE [None]
  - REHABILITATION THERAPY [None]
  - RHEUMATOID ARTHRITIS [None]
  - WOUND INFECTION [None]
  - DRUG INEFFECTIVE [None]
  - WOUND [None]
  - RIB FRACTURE [None]
  - ROTATOR CUFF SYNDROME [None]
  - ROAD TRAFFIC ACCIDENT [None]
  - PELVIC FRACTURE [None]
